FAERS Safety Report 5605784-2 (Version None)
Quarter: 2008Q1

REPORT INFORMATION
  Report Type: 
  Country: None (occurrence: None)
  Receive Date: 20080129
  Receipt Date: 20080122
  Transmission Date: 20080703
  Serious: Yes (Other)
  Sender: FDA-Public Use
  Company Number: US-ROCHE-542658

PATIENT
  Age: 87 Year
  Sex: Female

DRUGS (8)
  1. BONIVA [Suspect]
     Indication: DRUG USE FOR UNKNOWN INDICATION
     Route: 065
  2. ASPIRIN [Concomitant]
     Dosage: THE PATIENT WAS ON  1 BABY ASPIRIN.
  3. AVAPRO [Concomitant]
  4. HUMULIN N [Concomitant]
  5. HUMULIN 70/30 [Concomitant]
  6. OXYGEN [Concomitant]
     Dosage: THE PATIENT NEEDED OXYGEN TO SLEEP AT NIGHT.
  7. PRAVACHOL [Concomitant]
     Dosage: THE PATIENT WAS TAKING PRAVACHOL AT HOURS OF SLEEP (HS).
  8. UNSPECIFIED MEDICATIONS [Concomitant]
     Dosage: THE PATIENT WAS ON UNSPECIFIED INHALANTS.

REACTIONS (2)
  - BLOOD GLUCOSE DECREASED [None]
  - GASTROOESOPHAGEAL REFLUX DISEASE [None]
